FAERS Safety Report 8976044 (Version 7)
Quarter: 2013Q3

REPORT INFORMATION
  Report Type: Report from Study
  Country: US (occurrence: US)
  Receive Date: 20121219
  Receipt Date: 20130722
  Transmission Date: 20140515
  Serious: Yes (Hospitalization, Other)
  Sender: FDA-Public Use
  Company Number: US-ACTELION-A-US2012-72866

PATIENT
  Age: 51 Year
  Sex: Female

DRUGS (3)
  1. TRACLEER [Suspect]
     Indication: PULMONARY ARTERIAL HYPERTENSION
     Dosage: 125 MG, BID
     Route: 048
  2. TYVASO [Concomitant]
  3. TORSEMIDE [Concomitant]
     Dosage: 20 MG, UNK

REACTIONS (8)
  - Neoplasm malignant [Unknown]
  - Rheumatoid arthritis [Unknown]
  - Haemorrhage [Unknown]
  - Anaemia [Unknown]
  - Transfusion [Unknown]
  - Dyspnoea [Unknown]
  - Catheterisation cardiac [Unknown]
  - Malaise [Unknown]
